FAERS Safety Report 10495479 (Version 1)
Quarter: 2014Q3

REPORT INFORMATION
  Report Type: Spontaneous
  Country: US (occurrence: None)
  Receive Date: 20140815
  Receipt Date: 20140815
  Transmission Date: 20150326
  Serious: Yes (Life-Threatening, Hospitalization, Other)
  Sender: FDA-Public Use
  Company Number: ADR-2013-01030

PATIENT
  Age: 29 Year
  Sex: Female

DRUGS (1)
  1. LIORESAL [Suspect]
     Active Substance: BACLOFEN
     Indication: MUSCLE SPASTICITY
     Dosage: 100 MCG/DAY

REACTIONS (5)
  - Drug withdrawal syndrome [None]
  - Muscle spasticity [None]
  - Wound dehiscence [None]
  - Staphylococcal infection [None]
  - Implant site infection [None]

NARRATIVE: CASE EVENT DATE: 20130603
